FAERS Safety Report 22120719 (Version 1)
Quarter: 2023Q1

REPORT INFORMATION
  Report Type: Spontaneous
  Country: PL (occurrence: PL)
  Receive Date: 20230321
  Receipt Date: 20230321
  Transmission Date: 20230418
  Serious: Yes (Life-Threatening, Hospitalization, Other)
  Sender: FDA-Public Use
  Company Number: US-FreseniusKabi-FK202302508

PATIENT
  Sex: Male
  Weight: 119 kg

DRUGS (12)
  1. NIVOLUMAB [Suspect]
     Active Substance: NIVOLUMAB
     Indication: Product used for unknown indication
     Dosage: 360 MG
     Route: 042
     Dates: start: 20221025, end: 20221025
  2. CARBOPLATIN [Suspect]
     Active Substance: CARBOPLATIN
     Indication: Product used for unknown indication
     Dosage: 936 MG
     Dates: start: 20221025, end: 20221025
  3. PACLITAXEL [Suspect]
     Active Substance: PACLITAXEL
     Indication: Product used for unknown indication
     Dosage: 472 MG
     Dates: start: 20221025, end: 20221025
  4. DEXAMETHASONE [Concomitant]
     Active Substance: DEXAMETHASONE
     Indication: Product used for unknown indication
     Dosage: BD; TWICE PER DAY
     Route: 048
     Dates: start: 20221025, end: 20221025
  5. FILGRASTIM [Concomitant]
     Active Substance: FILGRASTIM
     Indication: Adverse event
     Dosage: DAILY; PER DAY?48
     Route: 058
     Dates: start: 20221103, end: 20221107
  6. CLEMASTINUM [CLEMASTINE] [Concomitant]
     Indication: Product used for unknown indication
     Dosage: ONCE
     Route: 042
     Dates: start: 20221025, end: 20221025
  7. ALLOPURINOL [Concomitant]
     Active Substance: ALLOPURINOL
     Indication: Product used for unknown indication
     Dosage: 100 MG?DAILY; PER DAY
     Route: 048
  8. DABIGATRAN [Concomitant]
     Active Substance: DABIGATRAN
     Indication: Product used for unknown indication
     Dosage: BD; TWICE PER DAY
     Route: 048
  9. NEBIVOLOL [Concomitant]
     Active Substance: NEBIVOLOL
     Indication: Product used for unknown indication
     Dosage: BD; TWICE PER DAY
     Dates: start: 20221025, end: 20221025
  10. RAMIPRIL [Concomitant]
     Active Substance: RAMIPRIL
     Indication: Product used for unknown indication
     Dosage: DAILY; PER DAY
     Route: 048
  11. TORSEMIDE [Concomitant]
     Active Substance: TORSEMIDE
     Indication: Product used for unknown indication
     Dosage: DAILY; PER DAY
     Route: 048
  12. FAMOTIDINUM [Concomitant]
     Indication: Product used for unknown indication
     Dosage: ONCE
     Route: 048
     Dates: start: 20221025, end: 20221025

REACTIONS (2)
  - Aortic stenosis [Recovered/Resolved]
  - Neutropenia [Recovered/Resolved]

NARRATIVE: CASE EVENT DATE: 20221103
